FAERS Safety Report 12701274 (Version 1)
Quarter: 2016Q3

REPORT INFORMATION
  Report Type: Spontaneous
  Country: FR (occurrence: FR)
  Receive Date: 20160831
  Receipt Date: 20160831
  Transmission Date: 20161109
  Serious: Yes (Hospitalization)
  Sender: FDA-Public Use
  Company Number: FR-BAXTER-2016BAX043582

PATIENT
  Age: 56 Year
  Sex: Female

DRUGS (16)
  1. CELLTOP 100 MG/5 ML, SOLUTION INJECTABLE POUR PERFUSION [Suspect]
     Active Substance: ETOPOSIDE
     Indication: LYMPHOMA
     Dosage: FIRST COURSE OF CHEMOTHERAPY; ON DAY 1, 2 AND 3
     Route: 042
     Dates: start: 20160628
  2. ONCOVIN [Suspect]
     Active Substance: VINCRISTINE SULFATE
     Indication: LYMPHOMA
     Dosage: ON DAY 8, FIRST COURSE
     Route: 065
  3. BLEOMYCIN [Suspect]
     Active Substance: BLEOMYCIN SULFATE
     Indication: LYMPHOMA
     Dosage: ON DAY 8, FIRST COURSE
     Route: 065
  4. CORTANCYL [Suspect]
     Active Substance: PREDNISONE
     Dosage: SECOND COURSE OF CHEMOTHERAPY, DAY 1 TO DAY 14
     Route: 042
     Dates: start: 20160725
  5. ENDOXAN 1000 MG, POUDRE POUR SOLUTION INJECTABLE [Suspect]
     Active Substance: CYCLOPHOSPHAMIDE
     Indication: LYMPHOMA
     Dosage: FIRST COURSE OF CHEMOTHERAPY; DAY 1
     Route: 042
     Dates: start: 20160628
  6. DOXORUBICIN [Suspect]
     Active Substance: DOXORUBICIN
     Indication: LYMPHOMA
     Dosage: FIRST COURSE OF CHEMOTHERAPY; DAY 1
     Route: 042
     Dates: start: 20160628
  7. CORTANCYL [Suspect]
     Active Substance: PREDNISONE
     Indication: LYMPHOMA
     Dosage: FIRST COURSE OF CHEMOTHERAPY, DAY 1 TO DAY 14
     Route: 042
     Dates: start: 20160628
  8. BACTRIM [Suspect]
     Active Substance: SULFAMETHOXAZOLE\TRIMETHOPRIM
     Indication: PRODUCT USED FOR UNKNOWN INDICATION
     Route: 065
     Dates: start: 20160628, end: 20160712
  9. DOXORUBICIN [Suspect]
     Active Substance: DOXORUBICIN
     Dosage: SECOND COURSE OF CHEMOTHERAPY; DAY 1
     Route: 042
     Dates: start: 20160725
  10. ENDOXAN 1000 MG, POUDRE POUR SOLUTION INJECTABLE [Suspect]
     Active Substance: CYCLOPHOSPHAMIDE
     Dosage: SECOND COURSE OF CHEMOTHERAPY; DAY 1
     Route: 042
     Dates: start: 20160725
  11. CELLTOP 100 MG/5 ML, SOLUTION INJECTABLE POUR PERFUSION [Suspect]
     Active Substance: ETOPOSIDE
     Dosage: SECOND COURSE OF CHEMOTHERAPY, ON DAY 1, 2 AND 3
     Route: 042
     Dates: start: 20160725
  12. NATULAN [Suspect]
     Active Substance: PROCARBAZINE HYDROCHLORIDE
     Indication: LYMPHOMA
     Dosage: FIRST COURSE OF CHEMOTHERAPY; ON DAY 1 TO DAY 8
     Route: 042
     Dates: start: 20160628
  13. ONCOVIN [Suspect]
     Active Substance: VINCRISTINE SULFATE
     Dosage: ON DAY 8, SECOND COURSE
     Route: 065
  14. WELLVONE [Concomitant]
     Active Substance: ATOVAQUONE
     Indication: PRODUCT USED FOR UNKNOWN INDICATION
     Route: 065
  15. NATULAN [Suspect]
     Active Substance: PROCARBAZINE HYDROCHLORIDE
     Dosage: SECOND COURSE OF CHEMOTHERAPY, DAY 1 TO DAY 8
     Route: 042
     Dates: start: 20160725
  16. BLEOMYCIN [Suspect]
     Active Substance: BLEOMYCIN SULFATE
     Dosage: ON DAY 8, SECOND COURSE
     Route: 065

REACTIONS (5)
  - Face oedema [Recovering/Resolving]
  - Vomiting [Recovering/Resolving]
  - Diarrhoea [Recovering/Resolving]
  - Pyrexia [Recovering/Resolving]
  - Toxic skin eruption [Recovering/Resolving]

NARRATIVE: CASE EVENT DATE: 20160712
